FAERS Safety Report 12509133 (Version 3)
Quarter: 2016Q3

REPORT INFORMATION
  Report Type: Spontaneous
  Country: NL (occurrence: NL)
  Receive Date: 20160629
  Receipt Date: 20160805
  Transmission Date: 20161109
  Serious: Yes (Hospitalization, Other)
  Sender: FDA-Public Use
  Company Number: NL-PFIZER INC-2016317119

PATIENT
  Age: 58 Year
  Sex: Female
  Weight: 80 kg

DRUGS (8)
  1. ZOLOFT [Suspect]
     Active Substance: SERTRALINE HYDROCHLORIDE
     Indication: ANXIETY
     Dosage: 0.5 ML, 1X/DAY
     Route: 048
     Dates: start: 20160222, end: 20160308
  2. ATROVENT [Concomitant]
     Active Substance: IPRATROPIUM BROMIDE
     Dosage: UNK, AS NEEDED
  3. OMEPRAZOL [Concomitant]
     Active Substance: OMEPRAZOLE
     Indication: ABDOMINAL PAIN UPPER
     Dosage: 40 MG, 2X/DAY
  4. ALVESCO [Concomitant]
     Active Substance: CICLESONIDE
     Dosage: 1 DF, 1X/DAY
  5. METFORMINE [Concomitant]
     Active Substance: METFORMIN HYDROCHLORIDE
     Dosage: 500 MG, 2X/DAY
  6. ZOLOFT [Suspect]
     Active Substance: SERTRALINE HYDROCHLORIDE
     Indication: DEPRESSION
     Dosage: UNK
     Dates: start: 20160724
  7. ASTHMAHALER [Concomitant]
     Dosage: UNK
  8. BROMAZEPAM [Concomitant]
     Active Substance: BROMAZEPAM
     Dosage: 4.5 MG, 1X/DAY, 0,5-1 TABLET EXTRA AS NEEDED

REACTIONS (13)
  - Condition aggravated [Recovered/Resolved]
  - Drug ineffective [Unknown]
  - Bronchitis [Recovered/Resolved]
  - Insomnia [Recovered/Resolved]
  - Nervousness [Unknown]
  - Dyspnoea [Recovered/Resolved]
  - Vision blurred [Unknown]
  - Asthma [Recovered/Resolved]
  - Nausea [Recovered/Resolved]
  - Sputum increased [Recovered/Resolved]
  - Respiratory tract irritation [Recovered/Resolved]
  - Influenza [Recovered/Resolved]
  - Abdominal pain [Unknown]

NARRATIVE: CASE EVENT DATE: 20160222
